FAERS Safety Report 5210873-0 (Version None)
Quarter: 2007Q1

REPORT INFORMATION
  Report Type: 
  Country: None (occurrence: None)
  Receive Date: 20070117
  Receipt Date: 20070110
  Transmission Date: 20070707
  Serious: Yes (Other)
  Sender: FDA-Public Use
  Company Number: GB-PFIZER INC-2007003507

PATIENT
  Age: 86 Year
  Sex: Female
  Weight: 45 kg

DRUGS (7)
  1. DOXAZOSIN MESYLATE [Suspect]
     Indication: HYPERTENSION
     Route: 048
     Dates: start: 20061012, end: 20061205
  2. AMITRIPTYLINE HYDROCHLORIDE [Concomitant]
     Indication: PAIN
     Route: 048
  3. AMLODIPINE [Concomitant]
     Indication: HYPERTENSION
     Route: 048
  4. ATORVASTATIN CALCIUM [Concomitant]
     Indication: HYPERTENSION
     Route: 048
  5. FUROSEMIDE [Concomitant]
     Indication: HYPERTENSION
     Route: 048
  6. MOVICOL [Concomitant]
  7. PERINDOPRIL ERBUMINE [Concomitant]
     Indication: HYPERTENSION
     Route: 048

REACTIONS (2)
  - LIP SWELLING [None]
  - SWELLING FACE [None]
